FAERS Safety Report 9193334 (Version 1)
Quarter: 2013Q1

REPORT INFORMATION
  Report Type: Spontaneous
  Country: US (occurrence: None)
  Receive Date: 20130325
  Receipt Date: 20130325
  Transmission Date: 20140127
  Serious: Yes (Other)
  Sender: FDA-Public Use
  Company Number: None

PATIENT
  Age: 43 Year
  Sex: Female
  Weight: 105.24 kg

DRUGS (1)
  1. PONSTEL [Suspect]
     Indication: MUSCLE SPASMS
     Dosage: X2 Q 6HR PO
     Route: 048
     Dates: start: 20130301, end: 20130307

REACTIONS (1)
  - Abdominal pain upper [None]
